FAERS Safety Report 6416284-4 (Version None)
Quarter: 2009Q4

REPORT INFORMATION
  Report Type: 
  Country: None (occurrence: None)
  Receive Date: 20091022
  Receipt Date: 20091015
  Transmission Date: 20100525
  Serious: Yes (Hospitalization)
  Sender: FDA-Public Use
  Company Number: THYR-1000180

PATIENT
  Age: 44 Year
  Sex: Female
  Weight: 55 kg

DRUGS (1)
  1. THYROGEN [Suspect]
     Indication: DRUG USE FOR UNKNOWN INDICATION
     Dosage: 0.9 MG, ONCE,
     Dates: start: 20090801, end: 20090801

REACTIONS (4)
  - ERYTHEMA [None]
  - HEADACHE [None]
  - MIGRAINE [None]
  - NERVOUSNESS [None]
